FAERS Safety Report 10246514 (Version 1)
Quarter: 2014Q2

REPORT INFORMATION
  Report Type: Spontaneous
  Country: US (occurrence: US)
  Receive Date: 20140619
  Receipt Date: 20140619
  Transmission Date: 20141212
  Serious: Yes (Other)
  Sender: FDA-Public Use
  Company Number: US-ASTRAZENECA-2014SE41194

PATIENT
  Sex: Female

DRUGS (3)
  1. RHINOCORT AQUA [Suspect]
     Route: 045
  2. COUMADIN THERAPY [Suspect]
  3. Z PACK [Concomitant]

REACTIONS (2)
  - Choking [Unknown]
  - International normalised ratio increased [Unknown]
